FAERS Safety Report 17829914 (Version 1)
Quarter: 2020Q2

REPORT INFORMATION
  Report Type: Spontaneous
  Country: CA (occurrence: CA)
  Receive Date: 20200527
  Receipt Date: 20200527
  Transmission Date: 20200714
  Serious: Yes (Hospitalization, Other)
  Sender: FDA-Public Use
  Company Number: CA-TEVA-2020-CA-1239772

PATIENT
  Age: 85 Year
  Sex: Male

DRUGS (3)
  1. IPRATROPIUM [Concomitant]
     Active Substance: IPRATROPIUM
  2. PREDNISONE. [Concomitant]
     Active Substance: PREDNISONE
  3. DOCETAXEL. [Suspect]
     Active Substance: DOCETAXEL
     Indication: PROSTATE CANCER METASTATIC
     Route: 042

REACTIONS (3)
  - Hypoxia [Recovered/Resolved]
  - Duodenal ulcer perforation [Recovered/Resolved]
  - Dyspnoea [Recovered/Resolved]
